FAERS Safety Report 6237455-6 (Version None)
Quarter: 2009Q2

REPORT INFORMATION
  Report Type: 
  Country: None (occurrence: None)
  Receive Date: 20090619
  Receipt Date: 20090609
  Transmission Date: 20091009
  Serious: Yes (Other)
  Sender: FDA-Public Use
  Company Number: PHHY2009PL22771

PATIENT
  Sex: Female

DRUGS (1)
  1. ZADITEN [Suspect]
     Dosage: 0.25 MG/ML, UNK

REACTIONS (2)
  - EYELID OEDEMA [None]
  - HYPERSENSITIVITY [None]
